APPROVED DRUG PRODUCT: ORAQIX
Active Ingredient: LIDOCAINE; PRILOCAINE
Strength: 2.5%;2.5%
Dosage Form/Route: GEL;PERIODONTAL
Application: N021451 | Product #001
Applicant: DENTSPLY PHARMACEUTICAL INC
Approved: Dec 19, 2003 | RLD: Yes | RS: Yes | Type: RX